FAERS Safety Report 6731989-3 (Version None)
Quarter: 2010Q2

REPORT INFORMATION
  Report Type: 
  Country: None (occurrence: None)
  Receive Date: 20100519
  Receipt Date: 20100507
  Transmission Date: 20101027
  Serious: Yes (Other)
  Sender: FDA-Public Use
  Company Number: PHHY2010AU29594

PATIENT
  Age: 13 Year
  Sex: Male

DRUGS (1)
  1. ZADITEN [Suspect]
     Indication: CONJUNCTIVITIS ALLERGIC
     Dosage: UNK
     Dates: start: 20100501

REACTIONS (2)
  - MIGRAINE WITH AURA [None]
  - VISUAL ACUITY REDUCED [None]
